FAERS Safety Report 4680953-7 (Version None)
Quarter: 2005Q2

REPORT INFORMATION
  Report Type: 
  Country: None (occurrence: None)
  Receive Date: 20050603
  Receipt Date: 20050510
  Transmission Date: 20051028
  Serious: Yes (Hospitalization)
  Sender: FDA-Public Use
  Company Number: PHRM2005FR01499

PATIENT
  Age: 62 Year
  Sex: Female

DRUGS (3)
  1. GLEEVEC [Suspect]
     Indication: GASTROINTESTINAL STROMAL TUMOUR
     Dosage: 400 MG DAILY
     Route: 048
     Dates: start: 20050106, end: 20050411
  2. CREON [Concomitant]
  3. ORACILLINE [Concomitant]
     Indication: SPLENECTOMY
     Dosage: 1 MIU, BID
     Dates: start: 20041201, end: 20050422

REACTIONS (8)
  - DIARRHOEA [None]
  - HYPOALBUMINAEMIA [None]
  - MUCOSAL INFLAMMATION [None]
  - OEDEMA PERIPHERAL [None]
  - ORAL CANDIDIASIS [None]
  - PERIORBITAL OEDEMA [None]
  - RASH [None]
  - STEATORRHOEA [None]
